FAERS Safety Report 6358055-3 (Version None)
Quarter: 2009Q3

REPORT INFORMATION
  Report Type: 
  Country: None (occurrence: None)
  Receive Date: 20090916
  Receipt Date: 20090908
  Transmission Date: 20100115
  Serious: Yes (Other)
  Sender: FDA-Public Use
  Company Number: A0806363A

PATIENT
  Age: 22 Year
  Sex: Female

DRUGS (5)
  1. LAMICTAL [Suspect]
     Indication: BIPOLAR DISORDER
     Dosage: 25MG PER DAY
     Route: 048
     Dates: start: 20090817, end: 20090904
  2. PAXIL [Concomitant]
  3. AMITRIPTYLINE [Concomitant]
  4. MAXALT [Concomitant]
  5. NAPROXIN [Concomitant]

REACTIONS (12)
  - AGGRESSION [None]
  - DIZZINESS [None]
  - DRUG EXPOSURE DURING PREGNANCY [None]
  - NAUSEA [None]
  - OROPHARYNGEAL PAIN [None]
  - PHARYNGEAL OEDEMA [None]
  - RASH [None]
  - STOMATITIS [None]
  - SUICIDAL IDEATION [None]
  - SWELLING FACE [None]
  - TREATMENT NONCOMPLIANCE [None]
  - VISION BLURRED [None]
